FAERS Safety Report 25655232 (Version 2)
Quarter: 2025Q3

REPORT INFORMATION
  Report Type: Spontaneous
  Country: JP (occurrence: JP)
  Receive Date: 20250807
  Receipt Date: 20250919
  Transmission Date: 20251021
  Serious: No
  Sender: PFIZER
  Company Number: JP-PFIZER INC-202500154223

PATIENT
  Age: 84 Year
  Sex: Female

DRUGS (1)
  1. PENICILLIN G BENZATHINE [Suspect]
     Active Substance: PENICILLIN G BENZATHINE
     Dates: start: 20250403, end: 20250403

REACTIONS (1)
  - Recalled product administered [Unknown]

NARRATIVE: CASE EVENT DATE: 20250403
